FAERS Safety Report 17682976 (Version 1)
Quarter: 2020Q2

REPORT INFORMATION
  Report Type: Spontaneous
  Country: FR (occurrence: FR)
  Receive Date: 20200420
  Receipt Date: 20200420
  Transmission Date: 20200714
  Serious: Yes (Other)
  Sender: FDA-Public Use
  Company Number: FR-BEH-2020115903

PATIENT
  Age: 73 Year
  Sex: Male
  Weight: 81 kg

DRUGS (1)
  1. PRIVIGEN [Suspect]
     Active Substance: HUMAN IMMUNOGLOBULIN G
     Indication: MYOSITIS
     Dosage: 40 GRAM OER 1 CYCKUCAK
     Route: 042
     Dates: start: 2013, end: 20191018

REACTIONS (4)
  - Neutropenia [Recovering/Resolving]
  - Product use in unapproved indication [Unknown]
  - Leukopenia [Recovered/Resolved]
  - No adverse event [Unknown]

NARRATIVE: CASE EVENT DATE: 20190920
